FAERS Safety Report 5165577-X (Version None)
Quarter: 2006Q4

REPORT INFORMATION
  Report Type: 
  Country: None (occurrence: None)
  Receive Date: 20061206
  Receipt Date: 19960416
  Transmission Date: 20070319
  Serious: Yes (Hospitalization)
  Sender: FDA-Public Use
  Company Number: FR-GLAXOSMITHKLINE-B0195684A

PATIENT
  Age: 6 Year
  Sex: Male

DRUGS (5)
  1. AUGMENTIN '125' [Suspect]
     Indication: COUGH
     Route: 048
     Dates: start: 19960101, end: 19960120
  2. VENTOLIN [Suspect]
     Indication: COUGH
     Route: 055
     Dates: start: 19960101, end: 19960120
  3. BISOLVON [Suspect]
     Indication: COUGH
     Route: 048
     Dates: start: 19960101, end: 19960120
  4. SILOMAT [Suspect]
     Indication: COUGH
     Route: 048
     Dates: start: 19960101, end: 19960120
  5. COQUELUSEDAL [Suspect]
     Indication: COUGH
     Route: 048
     Dates: start: 19960101, end: 19960120

REACTIONS (5)
  - ERYTHEMA MULTIFORME [None]
  - NIKOLSKY'S SIGN [None]
  - OEDEMA MOUTH [None]
  - SKIN LESION [None]
  - STEVENS-JOHNSON SYNDROME [None]
